FAERS Safety Report 9406414 (Version 1)
Quarter: 2013Q3

REPORT INFORMATION
  Report Type: Spontaneous
  Country: MX (occurrence: MX)
  Receive Date: 20130718
  Receipt Date: 20130718
  Transmission Date: 20140515
  Serious: Yes (Other)
  Sender: FDA-Public Use
  Company Number: MX-AMGEN-MEXSP2013049734

PATIENT
  Age: 45 Year
  Sex: Male

DRUGS (1)
  1. ARANESP [Suspect]
     Indication: BURKITT^S LYMPHOMA
     Dosage: 500 MG, Q3WK

REACTIONS (1)
  - Vena cava thrombosis [Unknown]
